FAERS Safety Report 5328248-2 (Version None)
Quarter: 2007Q2

REPORT INFORMATION
  Report Type: 
  Country: None (occurrence: None)
  Receive Date: 20070515
  Receipt Date: 20070515
  Transmission Date: 20071010
  Serious: Yes (Hospitalization)
  Sender: FDA-Public Use
  Company Number: None

PATIENT
  Sex: Male
  Weight: 69.5 kg

DRUGS (11)
  1. PHENYTOIN [Suspect]
     Indication: CONVULSION
     Dosage: 300MG QHS (PO)
     Route: 048
     Dates: start: 19960501
  2. AMIODARONE HCL [Concomitant]
  3. NITROFURANTOIN [Concomitant]
  4. WARFARIN SODIUM [Concomitant]
  5. NIACIN [Concomitant]
  6. SPIRONOLACTONE [Concomitant]
  7. SIMVASTATIN [Concomitant]
  8. LEVOTHYROXINE SODIUM [Concomitant]
  9. ASPIRIN [Concomitant]
  10. METOPROLOL SUCCINATE [Concomitant]
  11. LISINOPRIL [Concomitant]

REACTIONS (2)
  - ANTICONVULSANT DRUG LEVEL ABOVE THERAPEUTIC [None]
  - ASTHENIA [None]
